FAERS Safety Report 4659556-6 (Version None)
Quarter: 2005Q2

REPORT INFORMATION
  Report Type: 
  Country: None (occurrence: None)
  Receive Date: 20050510
  Receipt Date: 20050502
  Transmission Date: 20051028
  Serious: Yes (Other)
  Sender: FDA-Public Use
  Company Number: 2005059063

PATIENT
  Age: 38 Year
  Sex: Female

DRUGS (1)
  1. BEXTRA [Suspect]
     Indication: PHARYNGITIS
     Dosage: 40 MG (40 MG, 1 IN 1 D), ORAL
     Route: 048
     Dates: start: 20050214, end: 20050217

REACTIONS (3)
  - DRY SKIN [None]
  - ERYTHEMA [None]
  - FACE OEDEMA [None]
